FAERS Safety Report 4344066-6 (Version None)
Quarter: 2004Q2

REPORT INFORMATION
  Report Type: 
  Country: None (occurrence: None)
  Receive Date: 20040422
  Receipt Date: 20040407
  Transmission Date: 20050107
  Serious: Yes (Hospitalization, Other)
  Sender: FDA-Public Use
  Company Number: BW-GLAXOSMITHKLINE-B0329350A

PATIENT
  Age: 35 Year
  Sex: Female

DRUGS (3)
  1. ZIDOVUDINE [Suspect]
     Indication: HIV INFECTION
     Dates: start: 20030922
  2. EFAVIRENZ [Suspect]
     Indication: HIV INFECTION
     Dates: start: 20030922
  3. DIDANOSINE [Suspect]
     Indication: HIV INFECTION
     Dates: start: 20030922

REACTIONS (12)
  - BLOOD AMYLASE INCREASED [None]
  - BLOOD CREATININE ABNORMAL [None]
  - BLOOD CREATININE INCREASED [None]
  - BLOOD UREA INCREASED [None]
  - CONFUSIONAL STATE [None]
  - DEHYDRATION [None]
  - DIARRHOEA [None]
  - DISORIENTATION [None]
  - HEADACHE [None]
  - MENINGITIS CRYPTOCOCCAL [None]
  - MUSCULOSKELETAL STIFFNESS [None]
  - SEPTIC SHOCK [None]
